FAERS Safety Report 8538797 (Version 2)
Quarter: 2013Q3

REPORT INFORMATION
  Report Type: Spontaneous
  Country: US (occurrence: None)
  Receive Date: 20120420
  Receipt Date: 20130801
  Transmission Date: 20140515
  Serious: Yes (Hospitalization, Disabling, Other)
  Sender: FDA-Public Use
  Company Number: 2012AP000988

PATIENT
  Age: 71 Year
  Sex: Female

DRUGS (4)
  1. ALENDRONATE SODIUM [Suspect]
     Indication: OSTEOPOROSIS
     Dates: start: 200810, end: 200909
  2. ALENDRONATE SODIUM [Suspect]
     Indication: OSTEOPOROSIS
     Dates: start: 2000, end: 200611
  3. ALENDRONATE SODIUM [Suspect]
     Indication: OSTEOPOROSIS
     Dates: start: 200910, end: 201005
  4. IBANDRONATE SODIUM [Suspect]
     Indication: OSTEOPOROSIS
     Dates: start: 200702, end: 200805

REACTIONS (13)
  - Femur fracture [None]
  - Stress fracture [None]
  - Anxiety [None]
  - Emotional distress [None]
  - Low turnover osteopathy [None]
  - Osteogenesis imperfecta [None]
  - Fear [None]
  - Psychogenic pain disorder [None]
  - Quality of life decreased [None]
  - Bone density decreased [None]
  - Pain [None]
  - Fear of disease [None]
  - Psychogenic pain disorder [None]
